FAERS Safety Report 6764208-2 (Version None)
Quarter: 2010Q2

REPORT INFORMATION
  Report Type: 
  Country: None (occurrence: None)
  Receive Date: 20100610
  Receipt Date: 20100602
  Transmission Date: 20101027
  Serious: Yes (Life-Threatening, Hospitalization)
  Sender: FDA-Public Use
  Company Number: B0652534A

PATIENT
  Sex: Female

DRUGS (6)
  1. PAXIL [Suspect]
     Indication: DEPRESSION
     Dosage: 40MG PER DAY
     Route: 048
     Dates: end: 20100506
  2. ZYPREXA [Concomitant]
     Indication: SCHIZOPHRENIFORM DISORDER
     Dosage: 2.5MG PER DAY
     Route: 048
  3. RESLIN [Concomitant]
     Indication: INSOMNIA
     Dosage: 150MG PER DAY
     Route: 048
     Dates: start: 20090904
  4. TASMOLIN [Concomitant]
     Indication: PARKINSON'S DISEASE
     Dosage: 2MG PER DAY
     Route: 048
     Dates: start: 20090904
  5. SILECE [Concomitant]
     Indication: INSOMNIA
     Dosage: 1MG PER DAY
     Route: 048
     Dates: start: 20090904
  6. AMOBAN [Concomitant]
     Indication: INSOMNIA
     Dosage: 7.5MG PER DAY
     Route: 048
     Dates: start: 20090904

REACTIONS (7)
  - ALTERED STATE OF CONSCIOUSNESS [None]
  - DYSKINESIA [None]
  - GENERAL PHYSICAL HEALTH DETERIORATION [None]
  - HYPONATRAEMIA [None]
  - INABILITY TO CRAWL [None]
  - OXYGEN SATURATION DECREASED [None]
  - RESTLESSNESS [None]
